FAERS Safety Report 7876965-2 (Version None)
Quarter: 2011Q4

REPORT INFORMATION
  Report Type: 
  Country: None (occurrence: None)
  Receive Date: 20111031
  Receipt Date: 20111020
  Transmission Date: 20120403
  Serious: Yes (Hospitalization, Other)
  Sender: FDA-Public Use
  Company Number: PHHY2011GB79079

PATIENT
  Age: 76 Year
  Sex: Male

DRUGS (11)
  1. VENLAFAXINE [Suspect]
     Dosage: 75 MG, UNK
     Route: 048
  2. MIRTAZAPINE [Interacting]
     Dosage: 30 MG, UNK
  3. MIRTAZAPINE [Interacting]
     Dosage: 45 MG, UNK
  4. AMLODIPINE [Concomitant]
     Indication: HYPERTENSION
     Dosage: 5 MG, UNK
  5. LORAZEPAM [Concomitant]
     Dosage: 1 MG, UNK
  6. MIRTAZAPINE [Interacting]
  7. BENDROFLUMETHIAZIDE [Interacting]
     Indication: HYPERTENSION
  8. MIRTAZAPINE [Interacting]
     Dosage: 60 MG, UNK
  9. MIRTAZAPINE [Interacting]
     Dosage: 15 MG, UNK
  10. MIRTAZAPINE [Interacting]
     Dosage: 30 MG, UNK
  11. VALSARTAN [Concomitant]
     Indication: HYPERTENSION

REACTIONS (5)
  - URINARY HESITATION [None]
  - DRUG INTERACTION [None]
  - SYNCOPE [None]
  - CIRCULATORY COLLAPSE [None]
  - BLOOD SODIUM DECREASED [None]
